FAERS Safety Report 9120283 (Version 2)
Quarter: 2013Q2

REPORT INFORMATION
  Report Type: Report from Study
  Country: US (occurrence: US)
  Receive Date: 20130226
  Receipt Date: 20130422
  Transmission Date: 20140414
  Serious: Yes (Death, Hospitalization)
  Sender: FDA-Public Use
  Company Number: US-ACTELION-A-NJ2013-79484

PATIENT
  Age: 56 Year
  Sex: Male

DRUGS (2)
  1. TRACLEER [Suspect]
     Indication: PULMONARY ARTERIAL HYPERTENSION
     Dosage: UNK
     Route: 048
     Dates: start: 200404
  2. VELETRI [Suspect]
     Indication: PULMONARY ARTERIAL HYPERTENSION
     Dosage: 32.7 NG/KG, PER MIN
     Route: 041
     Dates: start: 20110119

REACTIONS (7)
  - Pulmonary hypertension [Fatal]
  - Respiratory failure [Fatal]
  - Dyspnoea [Fatal]
  - Hypoxia [Fatal]
  - Oedema [Fatal]
  - Pneumonia [Not Recovered/Not Resolved]
  - Heart disease congenital [Unknown]
